FAERS Safety Report 10477206 (Version 1)
Quarter: 2014Q3

REPORT INFORMATION
  Report Type: Spontaneous
  Country: CH (occurrence: CH)
  Receive Date: 20140926
  Receipt Date: 20140926
  Transmission Date: 20150326
  Serious: Yes (Other)
  Sender: FDA-Public Use
  Company Number: CH-SHIRE-CH201406199

PATIENT
  Age: 6 Decade
  Sex: Female

DRUGS (1)
  1. XAGRID [Suspect]
     Active Substance: ANAGRELIDE HYDROCHLORIDE
     Indication: MYELODYSPLASTIC SYNDROME
     Dosage: UNK, UNKNOWN
     Route: 048

REACTIONS (3)
  - Off label use [Unknown]
  - Diastolic dysfunction [Unknown]
  - Cardiac failure acute [Unknown]
